FAERS Safety Report 4594865-0 (Version None)
Quarter: 2005Q1

REPORT INFORMATION
  Report Type: 
  Country: None (occurrence: None)
  Receive Date: 20050223
  Receipt Date: 20050215
  Transmission Date: 20050727
  Serious: Yes (Hospitalization, Disabling)
  Sender: FDA-Public Use
  Company Number: 2005002084

PATIENT
  Age: 35 Year
  Sex: Female
  Weight: 52 kg

DRUGS (4)
  1. GENOTROPIN [Suspect]
     Indication: HYPOPITUITARISM
     Dosage: 0.5 MG (0.5 MG, DAILY), SUBCUTANEOUS
     Route: 059
     Dates: start: 19991209, end: 20041216
  2. THIORIDAZINE HCL [Concomitant]
  3. DIGOXIN [Concomitant]
  4. EUGYNON (ETHINYLESTRADIOL, LEVONORGESTREL) [Concomitant]

REACTIONS (13)
  - ABASIA [None]
  - ANOREXIA [None]
  - CENTRAL NERVOUS SYSTEM ABSCESS [None]
  - DYSPHAGIA [None]
  - DYSPHONIA [None]
  - ENCEPHALOPATHY [None]
  - HAEMANGIOBLASTOMA [None]
  - HYDROCEPHALUS [None]
  - INCONTINENCE [None]
  - PAIN IN EXTREMITY [None]
  - POST PROCEDURAL COMPLICATION [None]
  - RADIATION INJURY [None]
  - VON HIPPEL-LINDAU DISEASE [None]
